FAERS Safety Report 6131727-1 (Version None)
Quarter: 2009Q1

REPORT INFORMATION
  Report Type: 
  Country: None (occurrence: None)
  Receive Date: 20090325
  Receipt Date: 20090318
  Transmission Date: 20090719
  Serious: Yes (Other)
  Sender: FDA-Public Use
  Company Number: PHHY2009GB10510

PATIENT

DRUGS (1)
  1. IMATINIB MESYLATE [Suspect]

REACTIONS (1)
  - ACUTE MYELOID LEUKAEMIA [None]
